FAERS Safety Report 9478441 (Version 1)
Quarter: 2013Q3

REPORT INFORMATION
  Report Type: Spontaneous
  Country: US (occurrence: US)
  Receive Date: 20130827
  Receipt Date: 20130827
  Transmission Date: 20140515
  Serious: Yes (Hospitalization)
  Sender: FDA-Public Use
  Company Number: US-ELI_LILLY_AND_COMPANY-US201308004950

PATIENT
  Age: 42 Year
  Sex: Male

DRUGS (11)
  1. CYMBALTA [Suspect]
     Indication: DEPRESSION
     Dosage: 60 MG, BID
     Route: 065
  2. CYMBALTA [Suspect]
     Indication: ANXIETY
     Dosage: 60 MG, QD
     Route: 065
  3. CYMBALTA [Suspect]
     Indication: PAIN
  4. SEROQUEL [Suspect]
     Dosage: UNK, UNKNOWN
     Route: 065
  5. COCAINE [Suspect]
     Dosage: UNK, UNKNOWN
     Route: 065
  6. BUSPAR [Concomitant]
     Dosage: UNK, UNKNOWN
     Route: 065
  7. CLONIDINE [Concomitant]
     Dosage: UNK, UNKNOWN
     Route: 065
  8. METOPROLOL [Concomitant]
     Dosage: UNK, UNKNOWN
     Route: 065
  9. FLONASE [Concomitant]
     Dosage: UNK, UNKNOWN
     Route: 065
  10. GABAPENTIN [Concomitant]
     Dosage: UNK, UNKNOWN
     Route: 065
  11. METFORMIN [Concomitant]
     Dosage: UNK, UNKNOWN
     Route: 065

REACTIONS (5)
  - Depression [Unknown]
  - Anxiety [Unknown]
  - Inappropriate schedule of drug administration [Unknown]
  - Blood pressure decreased [Recovered/Resolved]
  - Drug abuse [Unknown]
